FAERS Safety Report 7060652-7 (Version None)
Quarter: 2010Q4

REPORT INFORMATION
  Report Type: 
  Country: None (occurrence: None)
  Receive Date: 20101025
  Receipt Date: 20101020
  Transmission Date: 20110411
  Serious: Yes (Hospitalization)
  Sender: FDA-Public Use
  Company Number: CA-ROCHE-735031

PATIENT
  Age: 63 Year
  Sex: Female

DRUGS (10)
  1. RIVOTRIL [Suspect]
     Indication: PRODUCT USED FOR UNKNOWN INDICATION
     Route: 065
  2. LYRICA [Suspect]
     Indication: PRODUCT USED FOR UNKNOWN INDICATION
     Route: 065
  3. LYRICA [Suspect]
     Route: 065
  4. ALTACE [Concomitant]
  5. CHAMPIX [Concomitant]
  6. FOSAMAX [Concomitant]
  7. SPIRIVA [Concomitant]
  8. SYMBICORT [Concomitant]
     Dosage: FORM: POWDER
  9. VENTOLIN [Concomitant]
  10. DILTIAZEM [Concomitant]
     Dosage: DRUG: RATIO DILTIAZEM CD. CONTROLLED DELIVERY.

REACTIONS (5)
  - AMNESIA [None]
  - ASTHENIA [None]
  - CONTUSION [None]
  - DYSPNOEA [None]
  - LOSS OF CONSCIOUSNESS [None]
